FAERS Safety Report 9200444 (Version 3)
Quarter: 2013Q4

REPORT INFORMATION
  Report Type: Spontaneous
  Country: GB (occurrence: GB)
  Receive Date: 20130329
  Receipt Date: 20131004
  Transmission Date: 20140711
  Serious: Yes (Hospitalization, Other)
  Sender: FDA-Public Use
  Company Number: GB-PFIZER INC-2013088326

PATIENT
  Age: 61 Year
  Sex: Female

DRUGS (8)
  1. SERTRALINE HCL [Suspect]
     Dosage: 50MG DAILY
     Route: 048
  2. VENLAFAXINE HCL [Suspect]
     Dosage: UNK
  3. RAMIPRIL [Suspect]
     Dosage: 75 MG, DAILY
     Route: 048
  4. TICAGRELOR [Suspect]
     Dosage: 90MG TWICE DAILY
     Route: 048
  5. ASPIRIN [Suspect]
     Dosage: 75MG ONCE DAILY
     Route: 048
  6. LANSOPRAZOLE [Concomitant]
     Dosage: 30MG ONCE DAILY
     Route: 048
  7. ATORVASTATIN [Concomitant]
     Dosage: UNK
     Route: 048
  8. BISOPROLOL [Concomitant]
     Dosage: 5 MG, UNK
     Route: 048

REACTIONS (9)
  - Myocardial infarction [Unknown]
  - Dyspepsia [Recovering/Resolving]
  - Abdominal pain upper [Recovering/Resolving]
  - Decreased appetite [Recovering/Resolving]
  - Weight decreased [Recovering/Resolving]
  - Diarrhoea [Unknown]
  - Faeces discoloured [Unknown]
  - Haemoglobin decreased [Unknown]
  - Orthostatic hypotension [Unknown]
